FAERS Safety Report 8679631 (Version 3)
Quarter: 2012Q4

REPORT INFORMATION
  Report Type: 
  Country: JP (occurrence: JP)
  Receive Date: 20120724
  Receipt Date: 20121008
  Transmission Date: 20130627
  Serious: Yes (Life-Threatening, Hospitalization, Other)
  Sender: FDA-Public Use
  Company Number: JP-PFIZER INC-2012172532

PATIENT
  Age: 59 Year
  Sex: Male
  Weight: 68 kg

DRUGS (10)
  1. LYRICA [Suspect]
     Indication: PAIN IN EXTREMITY
     Dosage: 600 mg, 1x/day
     Route: 048
     Dates: start: 201109
  2. LYRICA [Suspect]
     Indication: BACK PAIN
     Dosage: 225 mg, 1x/day
     Route: 048
     Dates: start: 2012, end: 2012
  3. LYRICA [Suspect]
     Dosage: 100 mg, 1x/day
     Route: 048
     Dates: start: 20120602, end: 20120611
  4. LYRICA [Suspect]
     Dosage: UNK
     Route: 048
     Dates: start: 20120616, end: 20120630
  5. TRYPTANOL [Concomitant]
     Indication: PAIN
     Dosage: 0.5 mg, 1x/day
     Route: 048
     Dates: start: 20090419
  6. DUROTEP MT PATCH [Concomitant]
     Indication: PAIN
     Dosage: 2.1 mg/day
     Route: 062
     Dates: start: 20120526, end: 20120611
  7. DUROTEP MT PATCH [Concomitant]
     Dosage: UNK
     Dates: start: 20120616
  8. MORPHINE HYDROCHLORIDE [Concomitant]
     Indication: PAIN
     Dosage: 0.5 mg, 3x/day
     Route: 048
     Dates: start: 20120421
  9. BUPRENORPHINE [Concomitant]
     Dosage: 10 mg/day
     Route: 062
     Dates: start: 201109, end: 20120526
  10. CODEINE PHOSPHATE [Concomitant]
     Dosage: 20 mg, 1x/day
     Route: 048
     Dates: start: 20120210, end: 20120420

REACTIONS (3)
  - Ventricular extrasystoles [Recovering/Resolving]
  - Loss of consciousness [Recovered/Resolved]
  - Congestive cardiomyopathy [Recovering/Resolving]
